FAERS Safety Report 6885976-5 (Version None)
Quarter: 2010Q3

REPORT INFORMATION
  Report Type: 
  Country: None (occurrence: None)
  Receive Date: 20100729
  Receipt Date: 20080929
  Transmission Date: 20110219
  Serious: No
  Sender: FDA-Public Use
  Company Number: US-PFIZER INC-2008063644

PATIENT
  Age: 78 Year
  Sex: Male
  Weight: 79.5 kg

DRUGS (5)
  1. CORTEF [Suspect]
     Indication: CUSHING'S SYNDROME
     Route: 048
     Dates: start: 20000101
  2. SIMVASTATIN [Concomitant]
     Indication: BLOOD CHOLESTEROL INCREASED
  3. SIMVASTATIN [Concomitant]
     Indication: HYPERLIPIDAEMIA
  4. TOPROL-XL [Concomitant]
     Indication: HYPERTENSION
  5. POTASSIUM [Concomitant]

REACTIONS (1)
  - DRUG INEFFECTIVE [None]
